FAERS Safety Report 9222246 (Version 1)
Quarter: 2013Q2

REPORT INFORMATION
  Report Type: Spontaneous
  Country: US (occurrence: None)
  Receive Date: 20130408
  Receipt Date: 20130408
  Transmission Date: 20140414
  Serious: Yes (Other)
  Sender: FDA-Public Use
  Company Number: COL_13369_2013

PATIENT
  Age: 13 Month
  Sex: Male

DRUGS (3)
  1. COLGATE TOTAL ADVANCED WHITENING PASTE TOOTHPASTE (SODIUM FLUORIDE 0.24% W/W TRICLOSAN 0.3% W/W) [Suspect]
     Indication: DENTAL CARIES
     Route: 048
     Dates: start: 20130321, end: 20130321
  2. COLGATE TOTAL ADVANCED WHITENING PASTE TOOTHPASTE (SODIUM FLUORIDE 0.24% W/W TRICLOSAN 0.3% W/W) [Suspect]
     Indication: DENTAL PLAQUE
     Route: 048
     Dates: start: 20130321, end: 20130321
  3. COLGATE TOTAL ADVANCED WHITENING PASTE TOOTHPASTE (SODIUM FLUORIDE 0.24% W/W TRICLOSAN 0.3% W/W) [Suspect]
     Indication: GINGIVITIS
     Route: 048
     Dates: start: 20130321, end: 20130321

REACTIONS (3)
  - Burns second degree [None]
  - Skin exfoliation [None]
  - Accidental exposure to product by child [None]
